FAERS Safety Report 8078724-7 (Version None)
Quarter: 2012Q1

REPORT INFORMATION
  Report Type: 
  Country: None (occurrence: None)
  Receive Date: 20120127
  Receipt Date: 20110110
  Transmission Date: 20120608
  Serious: No
  Sender: FDA-Public Use
  Company Number: US-ABBOTT-11P-163-0696398-00

PATIENT
  Age: 18 Year
  Sex: Male

DRUGS (3)
  1. DONNATAL EXTEND TABS [Concomitant]
     Indication: PRODUCT USED FOR UNKNOWN INDICATION
  2. HUMIRA [Suspect]
     Indication: CROHN'S DISEASE
     Dates: start: 20100901
  3. DOXYCYCLINE [Concomitant]
     Indication: ACNE
     Dosage: DAILY

REACTIONS (2)
  - ABDOMINAL PAIN [None]
  - DIARRHOEA [None]
